FAERS Safety Report 20884263 (Version 1)
Quarter: 2022Q2

REPORT INFORMATION
  Report Type: Spontaneous
  Country: AR (occurrence: AR)
  Receive Date: 20220527
  Receipt Date: 20220527
  Transmission Date: 20220721
  Serious: Yes (Death)
  Sender: FDA-Public Use
  Company Number: AR-BAYER-2022A071882

PATIENT
  Age: 70 Year
  Sex: Male

DRUGS (1)
  1. NEXAVAR [Suspect]
     Active Substance: SORAFENIB
     Indication: Huerthle cell carcinoma
     Dosage: 800 MG, QD

REACTIONS (4)
  - Illness [Fatal]
  - Palmar-plantar erythrodysaesthesia syndrome [None]
  - Hypertension [Recovering/Resolving]
  - Diarrhoea [Recovering/Resolving]
